FAERS Safety Report 4700278-0 (Version None)
Quarter: 2005Q2

REPORT INFORMATION
  Report Type: 
  Country: None (occurrence: None)
  Receive Date: 20050624
  Receipt Date: 20050624
  Transmission Date: 20051028
  Serious: Yes (Other)
  Sender: FDA-Public Use
  Company Number: None

PATIENT
  Age: 33 Year
  Sex: Female
  Weight: 73.4827 kg

DRUGS (1)
  1. SEPTRA DS [Suspect]
     Indication: CELLULITIS
     Dosage: ONE PO BID X 10 DAYS
     Route: 048
     Dates: start: 20050617

REACTIONS (3)
  - DYSPNOEA [None]
  - RASH [None]
  - URTICARIA [None]
